FAERS Safety Report 9665916 (Version 3)
Quarter: 2014Q4

REPORT INFORMATION
  Report Type: Spontaneous
  Country: JP (occurrence: JP)
  Receive Date: 20131104
  Receipt Date: 20141003
  Transmission Date: 20150529
  Serious: Yes (Disabling, Other)
  Sender: FDA-Public Use
  Company Number: JP-SUCAMPO PHARMA AMERICAS, INC-SPI201300753

PATIENT
  Age: 80 Year
  Sex: Female

DRUGS (5)
  1. SANPILO [Concomitant]
     Route: 047
  2. TAPROS [Concomitant]
     Active Substance: TAFLUPROST
     Route: 047
  3. RESCULA [Suspect]
     Active Substance: UNOPROSTONE ISOPROPYL
  4. UNSPECIFIED EYE DROP [Concomitant]
     Route: 047
  5. UNSPECIFIED EYE DROP [Concomitant]
     Route: 047

REACTIONS (2)
  - Face injury [None]
  - Blindness unilateral [Not Recovered/Not Resolved]
